FAERS Safety Report 7997679-4 (Version None)
Quarter: 2011Q4

REPORT INFORMATION
  Report Type: 
  Country: None (occurrence: None)
  Receive Date: 20111221
  Receipt Date: 20111214
  Transmission Date: 20120403
  Serious: Yes (Other)
  Sender: FDA-Public Use
  Company Number: US-PFIZER INC-2011305260

PATIENT
  Sex: Female
  Weight: 72 kg

DRUGS (4)
  1. ALBUTEROL [Concomitant]
     Indication: ASTHMA EXERCISE INDUCED
     Dosage: 2 TO 4 PUFFS, AS NEEDED
  2. PRISTIQ [Suspect]
     Indication: DEPRESSION
     Dosage: 50 MG, 1X/DAY
     Route: 048
     Dates: start: 20111109, end: 20111101
  3. AMPHETAM ASP/AMPHETAM SULF/DEXTROAMPHET SACC/DEXTROAMPHET SULF/ [Concomitant]
     Dosage: 3 MG BY TAKING HALF A TABLET IN THE MORNING AND ONE TABLET IN THE AFTERNOON
     Route: 048
  4. PRISTIQ [Suspect]
     Dosage: 50 MG, DAILY
     Route: 048
     Dates: start: 20111101, end: 20111101

REACTIONS (2)
  - HYPERSENSITIVITY [None]
  - FURUNCLE [None]
